FAERS Safety Report 9236232 (Version 1)
Quarter: 2013Q2

REPORT INFORMATION
  Report Type: Spontaneous
  Country: US (occurrence: US)
  Receive Date: 20130417
  Receipt Date: 20130417
  Transmission Date: 20140414
  Serious: Yes (Other)
  Sender: FDA-Public Use
  Company Number: US-PURDUE-USA-2013-0101144

PATIENT
  Age: 54 Year
  Sex: Male

DRUGS (2)
  1. OXYCONTIN (NDA 22-272) [Suspect]
     Indication: BACK PAIN
     Dosage: 60 MG, BID
     Route: 048
     Dates: start: 2012
  2. OXYCONTIN (NDA 22-272) [Suspect]
     Indication: PROCEDURAL PAIN
     Dosage: 80 MG, BID
     Route: 048

REACTIONS (1)
  - Ankle fracture [Unknown]
